FAERS Safety Report 5082698-0 (Version None)
Quarter: 2006Q3

REPORT INFORMATION
  Report Type: 
  Country: None (occurrence: None)
  Receive Date: 20060816
  Receipt Date: 20060816
  Transmission Date: 20061208
  Serious: No
  Sender: FDA-Public Use
  Company Number: None

PATIENT
  Age: 67 Year
  Sex: Female
  Weight: 63.6 kg

DRUGS (4)
  1. FOSAMAX [Suspect]
     Indication: OSTEOPENIA
     Dosage: 1 TAB    Q WEEK   PO
     Route: 048
     Dates: start: 20040127, end: 20060706
  2. ASPIRIN [Concomitant]
  3. MULTI-VITAMIN [Concomitant]
  4. CALCIUM / VIT D [Concomitant]

REACTIONS (8)
  - ARTHRALGIA [None]
  - BACK PAIN [None]
  - INTERVERTEBRAL DISC PROTRUSION [None]
  - OSTEOARTHRITIS [None]
  - PAIN [None]
  - PAIN IN EXTREMITY [None]
  - SPINAL DISORDER [None]
  - SPONDYLOLISTHESIS [None]
